FAERS Safety Report 6431529-2 (Version None)
Quarter: 2009Q4

REPORT INFORMATION
  Report Type: 
  Country: None (occurrence: None)
  Receive Date: 20091103
  Receipt Date: 20091019
  Transmission Date: 20100525
  Serious: Yes (Hospitalization)
  Sender: FDA-Public Use
  Company Number: 02100-JPN-06-0378

PATIENT
  Age: 68 Year
  Sex: Female
  Weight: 46.5 kg

DRUGS (4)
  1. PLETAL [Suspect]
     Dosage: 81 MG, QD; ORAL
     Route: 048
     Dates: start: 20060526, end: 20060812
  2. BLOPRESS (CANDESARTAN CILEXTIL) TABLET [Concomitant]
  3. NORVASC [Concomitant]
  4. FAMOTIDINE [Concomitant]

REACTIONS (5)
  - BLOOD UREA INCREASED [None]
  - GASTRIC ULCER HAEMORRHAGE [None]
  - HAEMATOCRIT DECREASED [None]
  - HAEMOGLOBIN DECREASED [None]
  - RED BLOOD CELL COUNT DECREASED [None]
